FAERS Safety Report 9439199 (Version 1)
Quarter: 2013Q3

REPORT INFORMATION
  Report Type: Spontaneous
  Country: CL (occurrence: CL)
  Receive Date: 20130803
  Receipt Date: 20130803
  Transmission Date: 20140515
  Serious: No
  Sender: FDA-Public Use
  Company Number: CL-009507513-1307CHL012312

PATIENT
  Age: 31 Year
  Sex: Female

DRUGS (1)
  1. NUVARING [Suspect]
     Indication: CONTRACEPTION
     Dosage: DELIVERS 0.120 MG/0.015 MG PER DAY
     Route: 067
     Dates: start: 201304, end: 20130714

REACTIONS (5)
  - Syncope [Recovered/Resolved]
  - Abnormal withdrawal bleeding [Unknown]
  - Menstruation irregular [Recovered/Resolved]
  - Nausea [Recovered/Resolved]
  - Vomiting [Recovered/Resolved]
